FAERS Safety Report 7541582-0 (Version None)
Quarter: 2011Q2

REPORT INFORMATION
  Report Type: 
  Country: None (occurrence: None)
  Receive Date: 20110613
  Receipt Date: 20110610
  Transmission Date: 20111010
  Serious: No
  Sender: FDA-Public Use
  Company Number: US-PFIZER INC-2011127730

PATIENT
  Sex: Male
  Weight: 95.238 kg

DRUGS (5)
  1. DIPHENHYDRAMINE HYDROCHLORIDE [Concomitant]
     Indication: SLEEP DISORDER
     Dosage: 1 OR 1 AND A HALF TABLET PER NIGHT
  2. LISINOPRIL [Concomitant]
     Indication: HYPERTENSION
     Dosage: UNK
  3. LYRICA [Suspect]
     Indication: NEUROPATHY PERIPHERAL
     Dosage: 150 MG, 2X/DAY
     Route: 048
  4. ANDROGEL [Concomitant]
     Dosage: UNK
  5. ALLOPURINOL [Concomitant]
     Dosage: UNK

REACTIONS (1)
  - DEPRESSION [None]
